FAERS Safety Report 17823471 (Version 4)
Quarter: 2022Q1

REPORT INFORMATION
  Report Type: Report from Study
  Country: US (occurrence: US)
  Receive Date: 20200526
  Receipt Date: 20220207
  Transmission Date: 20220423
  Serious: No
  Sender: FDA-Public Use
  Company Number: NVSC2020US143198

PATIENT
  Sex: Female

DRUGS (1)
  1. COSENTYX [Suspect]
     Active Substance: SECUKINUMAB
     Indication: Psoriasis
     Dosage: UNKNOWN
     Route: 065

REACTIONS (1)
  - Maternal exposure during pregnancy [Unknown]
